FAERS Safety Report 9922632 (Version 3)
Quarter: 2014Q2

REPORT INFORMATION
  Report Type: Report from Study
  Country: CA (occurrence: CA)
  Receive Date: 20140225
  Receipt Date: 20140410
  Transmission Date: 20141212
  Serious: Yes (Hospitalization)
  Sender: FDA-Public Use
  Company Number: CA-ABBVIE-14P-028-1203542-00

PATIENT
  Age: 42 Year
  Sex: Male

DRUGS (1)
  1. HUMIRA [Suspect]
     Indication: CROHN^S DISEASE
     Route: 058
     Dates: start: 20100611

REACTIONS (16)
  - Intestinal obstruction [Not Recovered/Not Resolved]
  - Medication error [Unknown]
  - Incorrect drug administration duration [Unknown]
  - Pain [Recovering/Resolving]
  - Malaise [Unknown]
  - Crohn^s disease [Unknown]
  - Gastrointestinal haemorrhage [Recovered/Resolved]
  - Abdominal pain upper [Unknown]
  - Haemoglobin decreased [Unknown]
  - Intestinal ulcer [Unknown]
  - Helicobacter gastritis [Unknown]
  - Iron deficiency [Unknown]
  - Asthenia [Unknown]
  - Dyspnoea [Unknown]
  - Iritis [Unknown]
  - Myalgia [Unknown]
